FAERS Safety Report 5684378-7 (Version None)
Quarter: 2008Q1

REPORT INFORMATION
  Report Type: 
  Country: None (occurrence: None)
  Receive Date: 20080328
  Receipt Date: 20080327
  Transmission Date: 20080703
  Serious: Yes (Death, Hospitalization)
  Sender: FDA-Public Use
  Company Number: B0514280A

PATIENT
  Age: 84 Year
  Sex: Male
  Weight: 80 kg

DRUGS (5)
  1. ARIXTRA [Suspect]
     Indication: PERIPHLEBITIS
     Dosage: 7.5MG PER DAY
     Route: 058
     Dates: start: 20080301, end: 20080301
  2. KARDEGIC [Concomitant]
     Dosage: 75MG PER DAY
     Route: 048
  3. TAHOR [Concomitant]
     Route: 065
  4. RAMIPRIL [Concomitant]
     Route: 065
  5. AMLODIPINE [Concomitant]
     Route: 065

REACTIONS (3)
  - HAEMORRHAGE INTRACRANIAL [None]
  - HEADACHE [None]
  - LOSS OF CONSCIOUSNESS [None]
